FAERS Safety Report 24422474 (Version 1)
Quarter: 2024Q4

REPORT INFORMATION
  Report Type: Spontaneous
  Country: US (occurrence: US)
  Receive Date: 20241010
  Receipt Date: 20241010
  Transmission Date: 20250115
  Serious: No
  Sender: LABORATOIRES SERB
  Company Number: US-SERB S.A.S.-2162770

PATIENT
  Age: 80 Year
  Sex: Male

DRUGS (2)
  1. DIGIFAB [Suspect]
     Active Substance: OVINE DIGOXIN IMMUNE FAB
     Indication: Toxicity to various agents
     Dates: start: 20240623
  2. DIGIFAB [Suspect]
     Active Substance: OVINE DIGOXIN IMMUNE FAB
     Indication: Atrial fibrillation

REACTIONS (2)
  - Cardioactive drug level increased [Not Recovered/Not Resolved]
  - Bradycardia [Not Recovered/Not Resolved]

NARRATIVE: CASE EVENT DATE: 20240624
